FAERS Safety Report 25424167 (Version 5)
Quarter: 2025Q3

REPORT INFORMATION
  Report Type: Report from Study
  Country: EU (occurrence: EU)
  Receive Date: 20250611
  Receipt Date: 20250725
  Transmission Date: 20251021
  Serious: Yes (Hospitalization, Other)
  Sender: NOVARTIS
  Company Number: EU-002147023-NVSC2025PT083208

PATIENT
  Age: 33 Year
  Sex: Male

DRUGS (4)
  1. KESIMPTA [Suspect]
     Active Substance: OFATUMUMAB
     Indication: Multiple sclerosis
     Dosage: 20 MG, QMO (UNDER THE SKIN, USUALLY BY INJECTION) ( HE STARTED TAKING THE MEDICINE AT NIGHT)
     Route: 058
     Dates: start: 20241213, end: 20250511
  2. LAMOTRIGINE [Suspect]
     Active Substance: LAMOTRIGINE
     Indication: Product used for unknown indication
     Dosage: 150 MG, QD (50 + 100 MG)
     Route: 065
     Dates: start: 202501
  3. VALPROIC ACID [Concomitant]
     Active Substance: VALPROIC ACID
     Indication: Product used for unknown indication
     Route: 065
  4. LACOSAMIDE [Concomitant]
     Active Substance: LACOSAMIDE
     Indication: Product used for unknown indication
     Route: 065

REACTIONS (20)
  - Neutropenia [Recovering/Resolving]
  - Febrile neutropenia [Recovered/Resolved]
  - C-reactive protein increased [Recovered/Resolved]
  - Mouth ulceration [Recovered/Resolved]
  - Fatigue [Recovered/Resolved]
  - CD19 lymphocytes decreased [Unknown]
  - Cell marker decreased [Unknown]
  - Lymphocyte/monocyte ratio increased [Unknown]
  - Glomerular filtration rate decreased [Unknown]
  - Neutrophil/lymphocyte ratio increased [Unknown]
  - Laboratory test abnormal [Unknown]
  - Fatigue [Recovered/Resolved]
  - Fatigue [Recovered/Resolved]
  - Blood immunoglobulin M decreased [Unknown]
  - Dysphagia [Recovered/Resolved]
  - Speech disorder [Recovered/Resolved]
  - Fatigue [Recovered/Resolved]
  - Mouth ulceration [Recovered/Resolved]
  - Speech disorder [Recovered/Resolved]
  - Dysphagia [Recovered/Resolved]

NARRATIVE: CASE EVENT DATE: 20241213
